FAERS Safety Report 5035832-2 (Version None)
Quarter: 2006Q2

REPORT INFORMATION
  Report Type: 
  Country: None (occurrence: None)
  Receive Date: 20060526
  Receipt Date: 20060327
  Transmission Date: 20061013
  Serious: No
  Sender: FDA-Public Use
  Company Number: FABR-11365

PATIENT
  Age: 35 Year
  Sex: Male

DRUGS (4)
  1. FABRAZYME [Suspect]
     Indication: FABRY'S DISEASE
     Dosage: 70 MG Q2WKS IV
     Route: 042
  2. POLARAMINE [Concomitant]
  3. FLUOXETINE [Concomitant]
  4. ENALAPRIL MALEATE [Concomitant]

REACTIONS (2)
  - CHILLS [None]
  - FLUSHING [None]
